FAERS Safety Report 17758180 (Version 3)
Quarter: 2020Q2

REPORT INFORMATION
  Report Type: Spontaneous
  Country: DK (occurrence: DK)
  Receive Date: 20200507
  Receipt Date: 20200515
  Transmission Date: 20200714
  Serious: Yes (Hospitalization)
  Sender: FDA-Public Use
  Company Number: NVSC2020DK118460

PATIENT
  Age: 53 Year
  Sex: Female

DRUGS (5)
  1. RAMIPRIL HEXAL [Suspect]
     Active Substance: RAMIPRIL
     Indication: HYPERTENSION
     Dosage: STYRKE: VARIERENDE.DOSIS: VARIERENDE.
     Route: 048
     Dates: start: 20171014, end: 20190131
  2. LOSARTAN POTASSIUM. [Concomitant]
     Active Substance: LOSARTAN POTASSIUM
     Indication: HYPERTENSION
     Dosage: STYRKE: UKENDT.DOSIS: UKENDT.
     Route: 048
     Dates: start: 20180205, end: 20180215
  3. SPIRON [Concomitant]
     Indication: HYPERTENSION
     Dosage: STYRKE: 25 MG.
     Route: 048
     Dates: start: 20171102
  4. AMLODIPINE [Concomitant]
     Active Substance: AMLODIPINE BESYLATE
     Indication: HYPERTENSION
     Dosage: STYRKE: UKENDT.DOSIS: UKENDT.
     Route: 065
     Dates: start: 20171014, end: 201712
  5. KALEORID [Concomitant]
     Active Substance: POTASSIUM CHLORIDE
     Indication: HYPOKALAEMIA
     Dosage: STYRKE: UKENDT.DOSIS: UKENDT.
     Route: 065

REACTIONS (11)
  - Headache [Recovered/Resolved]
  - Rash [Recovered/Resolved]
  - Foreign body sensation in eyes [Recovered/Resolved]
  - Oropharyngeal pain [Recovered/Resolved]
  - Pharyngeal swelling [Recovered/Resolved]
  - Nausea [Recovered/Resolved]
  - Claustrophobia [Not Recovered/Not Resolved]
  - Fatigue [Recovered/Resolved]
  - Suffocation feeling [Recovered/Resolved]
  - Cough [Recovered/Resolved]
  - Dyspnoea [Recovered/Resolved]

NARRATIVE: CASE EVENT DATE: 2018
